FAERS Safety Report 21517852 (Version 1)
Quarter: 2022Q4

REPORT INFORMATION
  Report Type: Report from Study
  Country: JP (occurrence: JP)
  Receive Date: 20221028
  Receipt Date: 20221028
  Transmission Date: 20230113
  Serious: Yes (Hospitalization)
  Sender: FDA-Public Use
  Company Number: JP-NOVARTISPH-NVSJ2022JP095083

PATIENT
  Age: 6 Year
  Sex: Female
  Weight: 23.8 kg

DRUGS (36)
  1. ILARIS [Suspect]
     Active Substance: CANAKINUMAB
     Indication: Familial mediterranean fever
     Dosage: 52.5 MG
     Route: 058
     Dates: start: 20170413
  2. ILARIS [Suspect]
     Active Substance: CANAKINUMAB
     Dosage: 52.5 MG
     Route: 058
     Dates: start: 20170424
  3. ILARIS [Suspect]
     Active Substance: CANAKINUMAB
     Dosage: 52.5 MG
     Route: 058
     Dates: start: 20170508
  4. ILARIS [Suspect]
     Active Substance: CANAKINUMAB
     Dosage: 52.5 MG
     Route: 058
     Dates: start: 20170522
  5. ILARIS [Suspect]
     Active Substance: CANAKINUMAB
     Dosage: 52.5 MG
     Route: 058
     Dates: start: 20170612
  6. ILARIS [Suspect]
     Active Substance: CANAKINUMAB
     Dosage: 105 MG
     Route: 058
     Dates: start: 20170710
  7. ILARIS [Suspect]
     Active Substance: CANAKINUMAB
     Dosage: 105 MG
     Route: 058
     Dates: start: 20170807
  8. ILARIS [Suspect]
     Active Substance: CANAKINUMAB
     Dosage: 105 MG
     Route: 058
     Dates: start: 20170904
  9. ILARIS [Suspect]
     Active Substance: CANAKINUMAB
     Dosage: 105 MG
     Route: 058
     Dates: start: 20180416
  10. ILARIS [Suspect]
     Active Substance: CANAKINUMAB
     Dosage: 105 MG
     Route: 058
     Dates: start: 20180514
  11. ILARIS [Suspect]
     Active Substance: CANAKINUMAB
     Dosage: 105 MG
     Route: 058
     Dates: start: 20180611
  12. ILARIS [Suspect]
     Active Substance: CANAKINUMAB
     Dosage: 105 MG
     Route: 058
     Dates: start: 20180709
  13. ILARIS [Suspect]
     Active Substance: CANAKINUMAB
     Dosage: 105 MG
     Route: 058
     Dates: start: 20180806
  14. ILARIS [Suspect]
     Active Substance: CANAKINUMAB
     Dosage: 117 MG
     Route: 058
     Dates: start: 20180903
  15. ILARIS [Suspect]
     Active Substance: CANAKINUMAB
     Dosage: 117 MG
     Route: 058
     Dates: start: 20181001
  16. ILARIS [Suspect]
     Active Substance: CANAKINUMAB
     Dosage: 117 MG
     Route: 058
     Dates: start: 20181029
  17. ILARIS [Suspect]
     Active Substance: CANAKINUMAB
     Dosage: 117 MG
     Route: 058
     Dates: start: 20181126
  18. ILARIS [Suspect]
     Active Substance: CANAKINUMAB
     Dosage: 117 MG
     Route: 058
     Dates: start: 20181226
  19. ILARIS [Suspect]
     Active Substance: CANAKINUMAB
     Dosage: 117 MG
     Route: 058
     Dates: start: 20190121
  20. ILARIS [Suspect]
     Active Substance: CANAKINUMAB
     Dosage: 117 MG
     Route: 058
     Dates: start: 20190218
  21. ILARIS [Suspect]
     Active Substance: CANAKINUMAB
     Dosage: 117 MG
     Route: 058
     Dates: start: 20190318
  22. ILARIS [Suspect]
     Active Substance: CANAKINUMAB
     Dosage: 120 MG
     Route: 058
     Dates: start: 20200427
  23. ILARIS [Suspect]
     Active Substance: CANAKINUMAB
     Dosage: 120 MG
     Route: 058
     Dates: start: 20200525
  24. ILARIS [Suspect]
     Active Substance: CANAKINUMAB
     Dosage: 120 MG
     Route: 058
     Dates: start: 20200622
  25. ILARIS [Suspect]
     Active Substance: CANAKINUMAB
     Dosage: 120 MG
     Route: 058
     Dates: start: 20200720
  26. ILARIS [Suspect]
     Active Substance: CANAKINUMAB
     Dosage: 120 MG
     Route: 058
     Dates: start: 20200817
  27. ILARIS [Suspect]
     Active Substance: CANAKINUMAB
     Dosage: 120 MG
     Route: 058
     Dates: start: 20200914
  28. ILARIS [Suspect]
     Active Substance: CANAKINUMAB
     Dosage: 120 MG
     Route: 058
     Dates: start: 20201012
  29. ILARIS [Suspect]
     Active Substance: CANAKINUMAB
     Dosage: 120 MG
     Route: 058
     Dates: start: 20201109
  30. ILARIS [Suspect]
     Active Substance: CANAKINUMAB
     Dosage: 120 MG
     Route: 058
     Dates: start: 20201207
  31. ILARIS [Suspect]
     Active Substance: CANAKINUMAB
     Dosage: 120 MG
     Route: 058
     Dates: start: 20210104
  32. ILARIS [Suspect]
     Active Substance: CANAKINUMAB
     Dosage: 120 MG
     Route: 058
     Dates: start: 20210201
  33. ILARIS [Suspect]
     Active Substance: CANAKINUMAB
     Dosage: 120 MG
     Route: 058
     Dates: start: 20210301
  34. ILARIS [Suspect]
     Active Substance: CANAKINUMAB
     Dosage: 120 MG
     Route: 058
     Dates: start: 20210329
  35. ILARIS [Suspect]
     Active Substance: CANAKINUMAB
     Dosage: 120 MG
     Route: 058
     Dates: start: 20210428
  36. ILARIS [Suspect]
     Active Substance: CANAKINUMAB
     Dosage: 120 MG
     Route: 058
     Dates: start: 20210526

REACTIONS (2)
  - Still^s disease [Recovering/Resolving]
  - Arthritis [Recovering/Resolving]

NARRATIVE: CASE EVENT DATE: 20210608
